FAERS Safety Report 12517219 (Version 2)
Quarter: 2016Q3

REPORT INFORMATION
  Report Type: Spontaneous
  Country: US (occurrence: US)
  Receive Date: 20160630
  Receipt Date: 20160723
  Transmission Date: 20161109
  Serious: Yes (Other)
  Sender: FDA-Public Use
  Company Number: US-RECKITT BENCKISER HEALTHCARE INT LIMITED-RB-87407-2016

PATIENT
  Age: 69 Year
  Sex: Female

DRUGS (1)
  1. MUCINEX [Suspect]
     Active Substance: GUAIFENESIN
     Indication: PRODUCT USED FOR UNKNOWN INDICATION
     Dosage: TOOK AS PER INSTRUCTIONS A TOTAL OF THREE TABLETS
     Route: 065
     Dates: start: 20160622, end: 20160623

REACTIONS (9)
  - Joint swelling [Unknown]
  - Rash macular [Unknown]
  - Swelling face [Unknown]
  - Hypoaesthesia [Unknown]
  - Swelling [Unknown]
  - Apparent death [Unknown]
  - Lip swelling [Unknown]
  - Pyrexia [Unknown]
  - Tenderness [Unknown]

NARRATIVE: CASE EVENT DATE: 2016
